FAERS Safety Report 23859769 (Version 1)
Quarter: 2024Q2

REPORT INFORMATION
  Report Type: Report from Study
  Country: US (occurrence: US)
  Receive Date: 20240515
  Receipt Date: 20240515
  Transmission Date: 20240716
  Serious: Yes (Hospitalization)
  Sender: FDA-Public Use
  Company Number: US-AQUESTIVE THERAPEUTICS, INC-2024AQU00049

PATIENT
  Age: 54 Year
  Sex: Male
  Weight: 72.562 kg

DRUGS (2)
  1. EXSERVAN [Suspect]
     Active Substance: RILUZOLE
     Indication: Amyotrophic lateral sclerosis
     Dosage: 50 MG, 2X/DAY
     Route: 048
     Dates: start: 202404, end: 202404
  2. HERBALS [Concomitant]
     Active Substance: HERBALS

REACTIONS (1)
  - Decreased appetite [Recovered/Resolved]

NARRATIVE: CASE EVENT DATE: 20240401
